FAERS Safety Report 22362442 (Version 1)
Quarter: 2023Q2

REPORT INFORMATION
  Report Type: Spontaneous
  Country: US (occurrence: US)
  Receive Date: 20230524
  Receipt Date: 20230524
  Transmission Date: 20230722
  Serious: Yes (Other)
  Sender: FDA-Public Use
  Company Number: US-009507513-2305USA006350

PATIENT
  Sex: Female

DRUGS (1)
  1. KEYTRUDA [Suspect]
     Active Substance: PEMBROLIZUMAB

REACTIONS (6)
  - Ovarian cancer [Unknown]
  - Endometrial cancer [Unknown]
  - Malignant neoplasm progression [Unknown]
  - Feeding disorder [Unknown]
  - Pain [Unknown]
  - Weight decreased [Unknown]
